FAERS Safety Report 19394964 (Version 2)
Quarter: 2021Q3

REPORT INFORMATION
  Report Type: Spontaneous
  Country: US (occurrence: US)
  Receive Date: 20210609
  Receipt Date: 20210714
  Transmission Date: 20211014
  Serious: No
  Sender: FDA-Public Use
  Company Number: US-GILEAD-2021-0534869

PATIENT
  Age: 51 Year
  Sex: Male

DRUGS (2)
  1. LATANOPROST. [Concomitant]
     Active Substance: LATANOPROST
  2. SOFOSBUVIR;VELPATASVIR [Suspect]
     Active Substance: SOFOSBUVIR\VELPATASVIR
     Indication: CHRONIC HEPATITIS C
     Dosage: 1 DOSAGE FORM, QD
     Route: 048

REACTIONS (2)
  - Haemorrhoids [Unknown]
  - Diarrhoea [Not Recovered/Not Resolved]
